FAERS Safety Report 17315855 (Version 8)
Quarter: 2025Q1

REPORT INFORMATION
  Report Type: Spontaneous
  Country: US (occurrence: US)
  Receive Date: 20200124
  Receipt Date: 20250303
  Transmission Date: 20250409
  Serious: No
  Sender: PFIZER
  Company Number: US-PFIZER INC-2020032944

PATIENT
  Age: 61 Year
  Sex: Female
  Weight: 100 kg

DRUGS (14)
  1. IBRANCE [Suspect]
     Active Substance: PALBOCICLIB
     Indication: Breast cancer female
     Route: 048
     Dates: start: 201910, end: 2019
  2. IBRANCE [Suspect]
     Active Substance: PALBOCICLIB
     Indication: Breast cancer metastatic
     Route: 048
     Dates: start: 20191104
  3. IBRANCE [Suspect]
     Active Substance: PALBOCICLIB
     Route: 048
     Dates: start: 20191104
  4. IBRANCE [Suspect]
     Active Substance: PALBOCICLIB
     Route: 048
  5. IBRANCE [Suspect]
     Active Substance: PALBOCICLIB
     Dates: start: 202001
  6. IBRANCE [Suspect]
     Active Substance: PALBOCICLIB
  7. CLONAZEPAM [Concomitant]
     Active Substance: CLONAZEPAM
  8. FARXIGA [Concomitant]
     Active Substance: DAPAGLIFLOZIN PROPANEDIOL
     Indication: Diabetes mellitus
     Dosage: 10 MG, DAILY [10MG TABLET AST TAKES 1 BY MOUTH DAILY]
     Route: 048
     Dates: start: 202005
  9. LAMOTRIGINE [Concomitant]
     Active Substance: LAMOTRIGINE
  10. LORAZEPAM [Concomitant]
     Active Substance: LORAZEPAM
  11. METFORMIN [Concomitant]
     Active Substance: METFORMIN HYDROCHLORIDE
     Indication: Diabetes mellitus
     Dosage: 500 MG, 2X/DAY [500MG TABLET, 1 TABLET BY MOUTH TWICE A DAY]
     Route: 048
     Dates: start: 202003
  12. PANTOPRAZOLE [Concomitant]
     Active Substance: PANTOPRAZOLE
  13. SPIRIVA RESPIMAT [Concomitant]
     Active Substance: TIOTROPIUM BROMIDE
  14. ALBUTEROL SULFATE [Concomitant]
     Active Substance: ALBUTEROL SULFATE

REACTIONS (10)
  - Fatigue [Unknown]
  - Pain [Unknown]
  - Upper respiratory tract infection [Unknown]
  - Glucose tolerance impaired [Unknown]
  - Malaise [Unknown]
  - Constipation [Recovering/Resolving]
  - Abdominal pain upper [Recovering/Resolving]
  - Weight decreased [Unknown]
  - Diarrhoea [Unknown]
  - Somnolence [Unknown]

NARRATIVE: CASE EVENT DATE: 20200602
